FAERS Safety Report 10792627 (Version 1)
Quarter: 2015Q1

REPORT INFORMATION
  Report Type: Spontaneous
  Country: US (occurrence: US)
  Receive Date: 20150213
  Receipt Date: 20150213
  Transmission Date: 20150721
  Serious: Yes (Life-Threatening, Other)
  Sender: FDA-Public Use
  Company Number: US-PFIZER INC-2015055448

PATIENT
  Age: 6 Year
  Sex: Male
  Weight: 91 kg

DRUGS (2)
  1. AMPICILLIN SODIUM/SULBACTAM SODIUM [Suspect]
     Active Substance: AMPICILLIN SODIUM\SULBACTAM SODIUM
     Indication: SALMONELLOSIS
     Dosage: UNK
  2. KEFLEX [Suspect]
     Active Substance: CEPHALEXIN
     Indication: SALMONELLOSIS
     Dosage: UNK

REACTIONS (2)
  - Pathogen resistance [Unknown]
  - Apparent death [Recovered/Resolved]

NARRATIVE: CASE EVENT DATE: 1978
